FAERS Safety Report 5266837-4 (Version None)
Quarter: 2007Q1

REPORT INFORMATION
  Report Type: 
  Country: None (occurrence: None)
  Receive Date: 20061213
  Receipt Date: 20040819
  Transmission Date: 20070707
  Serious: No
  Sender: FDA-Public Use
  Company Number: 2004UW17732

PATIENT
  Age: 77 Year
  Sex: Female
  Weight: 57.1532 kg

DRUGS (3)
  1. TAMOXIFEN CITRATE [Suspect]
     Indication: BREAST CANCER
     Dates: end: 20020101
  2. ACTONEL [Concomitant]
  3. CLARINEX [Concomitant]

REACTIONS (1)
  - CONTRALATERAL BREAST CANCER [None]
